FAERS Safety Report 9434264 (Version 2)
Quarter: 2013Q3

REPORT INFORMATION
  Report Type: Spontaneous
  Country: BR (occurrence: BR)
  Receive Date: 20130801
  Receipt Date: 20130827
  Transmission Date: 20140515
  Serious: Yes (Other)
  Sender: FDA-Public Use
  Company Number: PHHY2013BR081185

PATIENT
  Age: 87 Year
  Sex: Male
  Weight: 86 kg

DRUGS (15)
  1. EXELON [Suspect]
     Indication: DEMENTIA ALZHEIMER^S TYPE
     Dosage: 2 DF, DAILY
     Route: 048
  2. EXELON [Suspect]
     Dosage: 2 DF, DAILY
     Route: 048
     Dates: start: 201303, end: 201304
  3. EXELON [Suspect]
     Dosage: 2 DF, DAILY
     Route: 048
     Dates: end: 201305
  4. EXELON [Suspect]
     Dosage: 2 DF, DAILY
     Route: 048
  5. GALVUS MET [Suspect]
     Indication: TYPE 2 DIABETES MELLITUS
     Dosage: 2 DF PER DAY
     Route: 048
     Dates: start: 2012
  6. RIVASTIGMINE [Suspect]
     Dosage: UNK UKN, UNK
     Dates: start: 201302
  7. RIVASTIGMINE [Suspect]
     Dosage: UNK UKN, UNK
     Dates: start: 201306, end: 20130725
  8. METFORMIN [Suspect]
     Dosage: UNK UKN, UNK
  9. METFORMIN [Suspect]
     Dosage: UNK UKN, UNK
     Dates: end: 201304
  10. AGLITIL [Suspect]
     Dosage: UNK UKN, UNK
     Dates: start: 201304, end: 201304
  11. INSULIN ASPART [Concomitant]
     Indication: TYPE 2 DIABETES MELLITUS
     Dosage: 2 DF, DAILY
     Route: 058
  12. DIOVAN [Concomitant]
     Indication: HYPERTENSION
     Dosage: 1 DF, DAILY
     Route: 048
  13. AMLODIPINE [Concomitant]
     Indication: HYPERTENSION
     Dosage: 1 DF, DAILY
     Route: 048
  14. NATRILIX [Concomitant]
     Indication: DIURETIC THERAPY
     Dosage: 1 DF, DAILY
     Route: 048
  15. SOMALGIN [Concomitant]
     Indication: ANTICOAGULANT THERAPY
     Dosage: 1 DF, DAILY
     Route: 048

REACTIONS (16)
  - Bronchitis [Recovered/Resolved]
  - Urticaria [Recovered/Resolved]
  - Logorrhoea [Not Recovered/Not Resolved]
  - Aphagia [Recovered/Resolved]
  - Irritability [Unknown]
  - Drug intolerance [Unknown]
  - Nervousness [Not Recovered/Not Resolved]
  - Urinary incontinence [Unknown]
  - General physical health deterioration [Unknown]
  - Agitation [Not Recovered/Not Resolved]
  - Hallucination [Not Recovered/Not Resolved]
  - Dizziness [Recovered/Resolved]
  - Depression [Unknown]
  - Crying [Unknown]
  - Hypersomnia [Unknown]
  - Nausea [Recovered/Resolved]
